FAERS Safety Report 15821207 (Version 2)
Quarter: 2019Q1

REPORT INFORMATION
  Report Type: Report from Study
  Country: US (occurrence: US)
  Receive Date: 20190114
  Receipt Date: 20190325
  Transmission Date: 20190417
  Serious: Yes (Hospitalization, Other)
  Sender: FDA-Public Use
  Company Number: US-SA-2017SA002429

PATIENT
  Age: 83 Year
  Sex: Male
  Weight: 111.13 kg

DRUGS (19)
  1. INSULIN GLARGINE [Suspect]
     Active Substance: INSULIN GLARGINE
     Dosage: UNK UNK,QD
     Route: 058
  2. VYTORIN [Concomitant]
     Active Substance: EZETIMIBE\SIMVASTATIN
     Dosage: UNK UNK,QD
  3. ISOSORBIDE. [Concomitant]
     Active Substance: ISOSORBIDE
     Dosage: 20 MG,TID
  4. RANEXA [Concomitant]
     Active Substance: RANOLAZINE
     Dosage: 500 MG,TID
  5. ELIQUIS [Concomitant]
     Active Substance: APIXABAN
     Dosage: 2.5 MG,BID
  6. PREDNISONE. [Concomitant]
     Active Substance: PREDNISONE
     Dosage: 5 MG,QD
  7. FUROSEMIDE. [Concomitant]
     Active Substance: FUROSEMIDE
     Dosage: 20 MG,BID
  8. HYDROCODONE [Concomitant]
     Active Substance: HYDROCODONE
     Dosage: UNK UNK,PRN
  9. VITAMIN D3 [Concomitant]
     Active Substance: CHOLECALCIFEROL
     Dosage: UNK
  10. METHOTREXATE. [Concomitant]
     Active Substance: METHOTREXATE
     Indication: RHEUMATOID ARTHRITIS
     Dosage: UNK
  11. FOLIC ACID. [Concomitant]
     Active Substance: FOLIC ACID
     Indication: RHEUMATOID ARTHRITIS
     Dosage: 1 MG,BID
  12. LYRICA [Concomitant]
     Active Substance: PREGABALIN
     Dosage: 75 MG,TID
  13. PLAVIX [Concomitant]
     Active Substance: CLOPIDOGREL BISULFATE
     Dosage: UNK
  14. TEMAZEPAM. [Concomitant]
     Active Substance: TEMAZEPAM
     Dosage: 15 MG,PRN
  15. NITROSTAT [Concomitant]
     Active Substance: NITROGLYCERIN
     Dosage: 14 MG,PRN
  16. INSULIN GLARGINE [Suspect]
     Active Substance: INSULIN GLARGINE
     Indication: TYPE 2 DIABETES MELLITUS
     Dosage: 100 DF,QD
     Route: 058
     Dates: start: 20100101
  17. INSULIN GLARGINE [Suspect]
     Active Substance: INSULIN GLARGINE
     Dosage: 50 U
  18. LISINOPRIL. [Concomitant]
     Active Substance: LISINOPRIL
     Dosage: 2.5 MG,UNK
  19. NIFEDIPINE. [Concomitant]
     Active Substance: NIFEDIPINE
     Dosage: 60 MG,QD

REACTIONS (18)
  - Orthostatic hypotension [Unknown]
  - Blood glucose increased [Recovering/Resolving]
  - Blood glucose decreased [Recovered/Resolved]
  - Blood glucose increased [Recovered/Resolved]
  - Spinal disorder [Unknown]
  - Dyspnoea [Unknown]
  - Sinusitis [Unknown]
  - Cervical spinal stenosis [Unknown]
  - Product storage error [Unknown]
  - Atrial fibrillation [Recovered/Resolved]
  - Hypertension [Unknown]
  - Coronary artery disease [Not Recovered/Not Resolved]
  - Fall [Unknown]
  - Neuropathy peripheral [Not Recovered/Not Resolved]
  - Intentional product misuse [Unknown]
  - Intentional product use issue [Unknown]
  - Visual impairment [Unknown]
  - Neuralgia [Unknown]

NARRATIVE: CASE EVENT DATE: 20161222
